FAERS Safety Report 7492227-X (Version None)
Quarter: 2011Q2

REPORT INFORMATION
  Report Type: 
  Country: None (occurrence: None)
  Receive Date: 20110519
  Receipt Date: 20101201
  Transmission Date: 20111010
  Serious: No
  Sender: FDA-Public Use
  Company Number: US-NOVEN-ALL1-2010-06264

PATIENT
  Sex: Male
  Weight: 63.492 kg

DRUGS (4)
  1. DAYTRANA [Suspect]
     Dosage: 30 MG, 1X/DAY:QD
     Route: 062
     Dates: start: 20100101, end: 20101001
  2. DAYTRANA [Suspect]
     Dosage: 15 MG, 1X/DAY:QD
     Route: 062
     Dates: start: 20100101, end: 20100101
  3. DAYTRANA [Suspect]
     Dosage: 40 MG, 1X/DAY:QD(TWO 20 MG PATCHES)
     Route: 062
     Dates: start: 20101001
  4. DAYTRANA [Suspect]
     Dosage: 20 MG, 1X/DAY:QD
     Route: 062
     Dates: start: 20100101, end: 20100101

REACTIONS (6)
  - PRODUCT QUALITY ISSUE [None]
  - OVERDOSE [None]
  - APPLICATION SITE ERYTHEMA [None]
  - APPLICATION SITE PRURITUS [None]
  - DRUG DIVERSION [None]
  - INTENTIONAL DRUG MISUSE [None]
